FAERS Safety Report 19431750 (Version 1)
Quarter: 2021Q2

REPORT INFORMATION
  Report Type: Spontaneous
  Country: US (occurrence: US)
  Receive Date: 20210618
  Receipt Date: 20210618
  Transmission Date: 20210717
  Serious: No
  Sender: FDA-Public Use
  Company Number: US-SA-2021SA199455

PATIENT
  Sex: Female

DRUGS (1)
  1. DUPIXENT [Suspect]
     Active Substance: DUPILUMAB
     Indication: DERMATITIS ATOPIC
     Dosage: 300 MG, QOW(EVERY OTHER WEEK)
     Route: 058
     Dates: start: 202005

REACTIONS (4)
  - Eczema [Unknown]
  - Pruritus [Unknown]
  - Incorrect dose administered [Unknown]
  - Rash macular [Unknown]
